FAERS Safety Report 11983040 (Version 2)
Quarter: 2016Q1

REPORT INFORMATION
  Report Type: Spontaneous
  Country: US (occurrence: US)
  Receive Date: 20160201
  Receipt Date: 20160216
  Transmission Date: 20160526
  Serious: No
  Sender: FDA-Public Use
  Company Number: US-PFIZER INC-2016014409

PATIENT
  Age: 56 Year
  Sex: Female

DRUGS (1)
  1. ADVIL [Suspect]
     Active Substance: IBUPROFEN
     Dosage: 1 DF, 1X/DAY

REACTIONS (3)
  - Product use issue [Unknown]
  - Hypersensitivity [Unknown]
  - Asthma [Unknown]
